FAERS Safety Report 15302456 (Version 1)
Quarter: 2018Q3

REPORT INFORMATION
  Report Type: Spontaneous
  Country: ES (occurrence: ES)
  Receive Date: 20180821
  Receipt Date: 20180821
  Transmission Date: 20181010
  Serious: Yes (Other)
  Sender: FDA-Public Use
  Company Number: ES-TEVA-2018-ES-944876

PATIENT
  Age: 88 Year
  Sex: Female

DRUGS (10)
  1. ESPIRONOLACTONA (326A) [Concomitant]
     Active Substance: SPIRONOLACTONE
     Route: 048
  2. ZANIDIP 10 MG COMPRIMIDOS RECUBIERTOS CON PELICULA , 28 COMPRIMIDOS [Concomitant]
     Dosage: 10 MILLIGRAM DAILY;
     Route: 048
  3. CARVEDILOL (2431A) [Concomitant]
     Active Substance: CARVEDILOL
     Route: 048
     Dates: end: 20180622
  4. OMEPRAZOL (2141A) [Concomitant]
     Active Substance: OMEPRAZOLE
     Dosage: 20 MILLIGRAM DAILY;
     Route: 047
  5. FUROSEMIDA (1615A) [Concomitant]
     Active Substance: FUROSEMIDE
     Indication: CHRONIC KIDNEY DISEASE
     Dosage: 100 MILLIGRAM DAILY;
     Route: 048
  6. LEVOFLOXACINO [Suspect]
     Active Substance: LEVOFLOXACIN
     Indication: TRACHEOBRONCHITIS
     Dosage: 500 MILLIGRAM DAILY;
     Route: 048
     Dates: start: 20180612, end: 20180619
  7. NOVORAPID FLEXPEN 100 U/ML, SOLUCION INYECTABLE EN UNA PLUMA PRECARGAD [Concomitant]
     Indication: TYPE 2 DIABETES MELLITUS
     Route: 058
  8. SINTROM [Concomitant]
     Active Substance: ACENOCOUMAROL
     Indication: ATRIAL FIBRILLATION
     Dosage: SPL
     Route: 048
  9. ABASAGLAR 100 UNIDADES/ML SOLUCION INYECTABLE EN UNA PLUMA PRECARGADA [Concomitant]
     Indication: TYPE 2 DIABETES MELLITUS
     Dosage: 10 IU (INTERNATIONAL UNIT) DAILY;
     Route: 058
  10. TARDYFERON 80 MG COMPRIMIDOS RECUBIERTOS, 30 COMPRIMIDOS [Concomitant]
     Route: 048
     Dates: end: 20180619

REACTIONS (3)
  - Muscular weakness [Recovered/Resolved]
  - Fall [Recovered/Resolved]
  - Myoclonus [Recovered/Resolved]

NARRATIVE: CASE EVENT DATE: 20180612
